FAERS Safety Report 18287538 (Version 1)
Quarter: 2020Q3

REPORT INFORMATION
  Report Type: Spontaneous
  Country: US (occurrence: US)
  Receive Date: 20200921
  Receipt Date: 20200921
  Transmission Date: 20201103
  Serious: No
  Sender: FDA-Public Use
  Company Number: US-ASTRAZENECA-2020SF19328

PATIENT
  Sex: Male
  Weight: 84.8 kg

DRUGS (12)
  1. AMLODIPINE [Concomitant]
     Active Substance: AMLODIPINE BESYLATE
  2. ATORVASTATIN [Concomitant]
     Active Substance: ATORVASTATIN
  3. FERROUS SULFATE. [Concomitant]
     Active Substance: FERROUS SULFATE
  4. METOPROLOL ER [Concomitant]
     Active Substance: METOPROLOL SUCCINATE
  5. NITROGLYCERIN. [Concomitant]
     Active Substance: NITROGLYCERIN
  6. FOLIC ACID. [Concomitant]
     Active Substance: FOLIC ACID
  7. VITAMINS [Concomitant]
     Active Substance: VITAMINS
  8. LOSARTAN. [Concomitant]
     Active Substance: LOSARTAN
  9. SYMBICORT [Suspect]
     Active Substance: BUDESONIDE\FORMOTEROL FUMARATE DIHYDRATE
     Indication: CHRONIC OBSTRUCTIVE PULMONARY DISEASE
     Dosage: 160/4.5 UG, TWO PUFFS, EVERY 12 HOURS
     Route: 055
  10. CLONAZAPAM [Concomitant]
     Active Substance: CLONAZEPAM
     Indication: TREMOR
  11. ALBUTEROL. [Concomitant]
     Active Substance: ALBUTEROL
  12. SPIRIVA [Concomitant]
     Active Substance: TIOTROPIUM BROMIDE MONOHYDRATE

REACTIONS (4)
  - Blood pressure abnormal [Unknown]
  - Dysgeusia [Unknown]
  - Intentional device misuse [Unknown]
  - Device issue [Unknown]
